FAERS Safety Report 8543992-1 (Version None)
Quarter: 2012Q3

REPORT INFORMATION
  Report Type: 
  Country: None (occurrence: None)
  Receive Date: 20120727
  Receipt Date: 20120717
  Transmission Date: 20120928
  Serious: Yes (Hospitalization)
  Sender: FDA-Public Use
  Company Number: US-BAYER-201035489NA

PATIENT
  Age: 17 Year
  Sex: Female
  Weight: 99.773 kg

DRUGS (1)
  1. YAZ [Suspect]
     Indication: CONTRACEPTION
     Dates: start: 20090301, end: 20090506

REACTIONS (7)
  - ABDOMINAL PAIN [None]
  - RENAL FAILURE [None]
  - CHOLECYSTITIS CHRONIC [None]
  - CHOLELITHIASIS [None]
  - PANCREATITIS [None]
  - FLATULENCE [None]
  - BILE DUCT STONE [None]
